FAERS Safety Report 16498563 (Version 1)
Quarter: 2019Q2

REPORT INFORMATION
  Report Type: Spontaneous
  Country: FR (occurrence: FR)
  Receive Date: 20190629
  Receipt Date: 20190629
  Transmission Date: 20190711
  Serious: Yes (Hospitalization, Other)
  Sender: FDA-Public Use
  Company Number: PHHY2016FR185985

PATIENT
  Age: 4 Month
  Sex: Female
  Weight: 6 kg

DRUGS (19)
  1. SOLU-MEDROL [Concomitant]
     Active Substance: METHYLPREDNISOLONE SODIUM SUCCINATE
     Indication: HAEMOPHAGOCYTIC LYMPHOHISTIOCYTOSIS
     Dosage: 1.6 MG, QD
     Route: 042
     Dates: start: 20161109, end: 20161224
  2. PARACETAMOL [Suspect]
     Active Substance: ACETAMINOPHEN
     Indication: PREMEDICATION
     Dosage: 2.5 MG, QD
     Route: 042
     Dates: start: 20161124, end: 20161125
  3. BACTRIM [Suspect]
     Active Substance: SULFAMETHOXAZOLE\TRIMETHOPRIM
     Dosage: 40 MG, QD
     Route: 042
     Dates: start: 20161119
  4. PARACETAMOL [Suspect]
     Active Substance: ACETAMINOPHEN
     Indication: PREMEDICATION
     Dosage: 60 MG, Q6H
     Route: 048
     Dates: start: 20161110
  5. BACTRIM [Suspect]
     Active Substance: SULFAMETHOXAZOLE\TRIMETHOPRIM
     Dosage: 40 MG, QD
     Route: 042
     Dates: start: 20161205
  6. METHYLPREDNISOLONE. [Suspect]
     Active Substance: METHYLPREDNISOLONE
     Dosage: 1 MG/KG, QD
     Route: 042
  7. PARACETAMOL [Suspect]
     Active Substance: ACETAMINOPHEN
     Dosage: 7.5 MG/KG, QD
     Route: 042
     Dates: start: 20161125, end: 20161126
  8. CAMPATH [Suspect]
     Active Substance: ALEMTUZUMAB
     Dosage: 5.5 MG, UNK
     Route: 041
     Dates: start: 20161111, end: 20161112
  9. CAMPATH [Suspect]
     Active Substance: ALEMTUZUMAB
     Dosage: 2.5 MG, UNK
     Route: 041
     Dates: start: 20161125, end: 20161125
  10. BACTRIM [Suspect]
     Active Substance: SULFAMETHOXAZOLE\TRIMETHOPRIM
     Indication: PROPHYLAXIS
     Dosage: 140 MG, QD
     Route: 048
     Dates: start: 20161114
  11. METHYLPREDNISOLONE. [Suspect]
     Active Substance: METHYLPREDNISOLONE
     Indication: FAMILIAL HAEMOPHAGOCYTIC LYMPHOHISTIOCYTOSIS
     Dosage: 12 MG, QD
     Route: 042
     Dates: start: 20151110
  12. METHYLPREDNISOLONE. [Suspect]
     Active Substance: METHYLPREDNISOLONE
     Dosage: 140 MG, QD
     Route: 042
     Dates: start: 20161124, end: 20161125
  13. METHYLPREDNISOLONE. [Suspect]
     Active Substance: METHYLPREDNISOLONE
     Dosage: 0.9 MG/KG, QD
     Route: 042
     Dates: start: 20151125, end: 20161126
  14. CYCLOSPORINE. [Concomitant]
     Active Substance: CYCLOSPORINE
     Indication: PREMEDICATION
     Dosage: 10.6 MG, QD
     Route: 042
     Dates: start: 20161109
  15. CYCLOSPORINE. [Concomitant]
     Active Substance: CYCLOSPORINE
     Indication: HAEMOPHAGOCYTIC LYMPHOHISTIOCYTOSIS
     Dosage: 7 MG, QD
     Route: 042
     Dates: start: 20161110
  16. CAMPATH [Suspect]
     Active Substance: ALEMTUZUMAB
     Indication: FAMILIAL HAEMOPHAGOCYTIC LYMPHOHISTIOCYTOSIS
     Dosage: 2.75 MG, UNK
     Route: 041
     Dates: start: 20161110, end: 20161110
  17. CAMPATH [Suspect]
     Active Substance: ALEMTUZUMAB
     Dosage: 5.4 MG, UNK
     Route: 041
     Dates: start: 20161124, end: 20161124
  18. DEXCHLORPHENIRAMINE [Suspect]
     Active Substance: DEXCHLORPHENIRAMINE
     Indication: PREMEDICATION
     Dosage: 2.5 MG, QD
     Route: 042
     Dates: start: 20161124, end: 20161125
  19. UVESTEROL D [Concomitant]
     Active Substance: ERGOCALCIFEROL
     Indication: NUTRITIONAL SUPPLEMENTATION
     Dosage: 1 DF, QD
     Route: 048
     Dates: start: 20161110, end: 20161216

REACTIONS (15)
  - Pseudomonal sepsis [Recovered/Resolved]
  - Pyrexia [Recovered/Resolved]
  - Livedo reticularis [Recovered/Resolved]
  - Septic embolus [Unknown]
  - Pulmonary embolism [Recovered/Resolved]
  - Pseudomonas test positive [Recovered/Resolved]
  - Chills [Recovered/Resolved]
  - Tachycardia [Recovered/Resolved]
  - Sepsis [Recovering/Resolving]
  - Neutropenia [Recovered/Resolved]
  - Pseudomonal bacteraemia [Recovered/Resolved with Sequelae]
  - Injection site haemorrhage [Unknown]
  - Pyrexia [Recovering/Resolving]
  - Accidental overdose [Unknown]
  - Lung abscess [Recovering/Resolving]

NARRATIVE: CASE EVENT DATE: 20161128
